FAERS Safety Report 20032657 (Version 1)
Quarter: 2021Q4

REPORT INFORMATION
  Report Type: Report from Study
  Country: CA (occurrence: CA)
  Receive Date: 20211103
  Receipt Date: 20211103
  Transmission Date: 20220303
  Serious: Yes (Other)
  Sender: FDA-Public Use
  Company Number: CA-ABBVIE-21K-028-4140315-00

PATIENT
  Age: 57 Year
  Sex: Female

DRUGS (1)
  1. HUMIRA [Suspect]
     Active Substance: ADALIMUMAB
     Indication: Psoriatic arthropathy
     Route: 058
     Dates: start: 20150731

REACTIONS (5)
  - Pulmonary oedema [Unknown]
  - Back disorder [Unknown]
  - Rib fracture [Unknown]
  - Spinal fracture [Unknown]
  - Pain [Unknown]

NARRATIVE: CASE EVENT DATE: 20200301
